FAERS Safety Report 16301231 (Version 1)
Quarter: 2019Q2

REPORT INFORMATION
  Report Type: Spontaneous
  Country: US (occurrence: US)
  Receive Date: 20190510
  Receipt Date: 20190510
  Transmission Date: 20190711
  Serious: No
  Sender: FDA-Public Use
  Company Number: US-009507513-1905USA001094

PATIENT
  Age: 10 Month
  Sex: Male

DRUGS (1)
  1. DIPROLENE [Suspect]
     Active Substance: BETAMETHASONE DIPROPIONATE
     Indication: LANGERHANS^ CELL HISTIOCYTOSIS
     Dosage: UNK, BID

REACTIONS (1)
  - Product administered to patient of inappropriate age [Unknown]
